FAERS Safety Report 20998159 (Version 1)
Quarter: 2022Q2

REPORT INFORMATION
  Report Type: Spontaneous
  Country: SI (occurrence: SI)
  Receive Date: 20220623
  Receipt Date: 20220623
  Transmission Date: 20220720
  Serious: Yes (Congenital Anomaly, Other)
  Sender: FDA-Public Use
  Company Number: SI-NEBO-PC008564

PATIENT
  Age: 32 Year
  Sex: Female

DRUGS (3)
  1. IRON ISOMALTOSIDE 1000 [Suspect]
     Active Substance: IRON ISOMALTOSIDE 1000
     Indication: Anaemia
     Route: 042
     Dates: start: 20220112, end: 20220112
  2. ENTYVIO [Concomitant]
     Active Substance: VEDOLIZUMAB
     Indication: Crohn^s disease
  3. VITAMIN D [Concomitant]
     Active Substance: VITAMIN D NOS

REACTIONS (6)
  - Hypersensitivity [Recovered/Resolved]
  - Abdominal pain lower [Unknown]
  - Maternal exposure during pregnancy [Recovered/Resolved]
  - Uterine haematoma [Unknown]
  - Abortion induced [Recovered/Resolved]
  - Vaginal haemorrhage [Unknown]

NARRATIVE: CASE EVENT DATE: 20220101
